FAERS Safety Report 16034635 (Version 1)
Quarter: 2019Q1

REPORT INFORMATION
  Report Type: Spontaneous
  Country: US (occurrence: US)
  Receive Date: 20190305
  Receipt Date: 20190305
  Transmission Date: 20190418
  Serious: Yes (Hospitalization, Other)
  Sender: FDA-Public Use
  Company Number: US-AUROBINDO-AUR-APL-2019-010610

PATIENT

DRUGS (3)
  1. LISINOPRIL. [Concomitant]
     Active Substance: LISINOPRIL
     Indication: HYPERTENSION
     Dosage: 40 MILLIGRAM
     Route: 065
  2. CLOPIDOGREL [Concomitant]
     Active Substance: CLOPIDOGREL BISULFATE
     Indication: STENT PLACEMENT
     Dosage: UNK
     Route: 065
  3. SILDENAFIL. [Suspect]
     Active Substance: SILDENAFIL
     Indication: ERECTILE DYSFUNCTION
     Dosage: 400 MILLIGRAM
     Route: 065

REACTIONS (12)
  - Dysuria [Unknown]
  - Cold sweat [Unknown]
  - Palpitations [Unknown]
  - Haematuria [Unknown]
  - Blood parathyroid hormone increased [Unknown]
  - Acute kidney injury [Unknown]
  - Blood creatinine increased [Recovered/Resolved]
  - Renal tubular necrosis [Unknown]
  - Blood pressure decreased [Unknown]
  - Oedema peripheral [Unknown]
  - Blood urea increased [Unknown]
  - Overdose [Unknown]
